FAERS Safety Report 9792793 (Version 2)
Quarter: 2014Q1

REPORT INFORMATION
  Report Type: Report from Study
  Country: US (occurrence: US)
  Receive Date: 20140102
  Receipt Date: 20140324
  Transmission Date: 20141002
  Serious: Yes (Hospitalization)
  Sender: FDA-Public Use
  Company Number: US-NAPPMUNDI-USA-2013-0109866

PATIENT
  Age: 55 Year
  Sex: Female
  Weight: 97.51 kg

DRUGS (3)
  1. OXY CR TAB [Suspect]
     Indication: BACK PAIN
     Dosage: 30 MG, BID
     Route: 048
     Dates: start: 20130915
  2. OXY CR TAB [Suspect]
     Dosage: 30 MG, UNK
     Route: 048
     Dates: start: 201308
  3. OXY CR TAB [Suspect]
     Dosage: 40 MG, BID
     Dates: start: 2005

REACTIONS (4)
  - Gastroenteritis viral [Unknown]
  - Asthenia [Unknown]
  - Heart rate decreased [Unknown]
  - Vomiting [Unknown]
